FAERS Safety Report 19872241 (Version 1)
Quarter: 2021Q3

REPORT INFORMATION
  Report Type: Spontaneous
  Country: US (occurrence: US)
  Receive Date: 20210923
  Receipt Date: 20210923
  Transmission Date: 20211014
  Serious: Yes (Other)
  Sender: FDA-Public Use
  Company Number: None

PATIENT
  Age: 55 Year
  Sex: Male
  Weight: 88.2 kg

DRUGS (12)
  1. ALECENSA [Suspect]
     Active Substance: ALECTINIB HYDROCHLORIDE
     Indication: LUNG NEOPLASM MALIGNANT
     Route: 048
     Dates: start: 20210830
  2. LEXAPRO [Concomitant]
     Active Substance: ESCITALOPRAM OXALATE
  3. ONDANSETRON [Concomitant]
     Active Substance: ONDANSETRON
  4. NYSTATIN. [Concomitant]
     Active Substance: NYSTATIN
  5. DEXAMETHASONE. [Concomitant]
     Active Substance: DEXAMETHASONE
  6. PANTOPRAZOLE [Concomitant]
     Active Substance: PANTOPRAZOLE
  7. LORAZEPAM. [Concomitant]
     Active Substance: LORAZEPAM
  8. FENTANYL. [Concomitant]
     Active Substance: FENTANYL
  9. CLEARLAX [Concomitant]
     Active Substance: POLYETHYLENE GLYCOL 3350
  10. IPRATROPIUM?ALBUTEROL [Concomitant]
     Active Substance: ALBUTEROL\IPRATROPIUM
  11. SENOKOT [Concomitant]
     Active Substance: SENNOSIDES
  12. MAGNESIUM OXIDE. [Concomitant]
     Active Substance: MAGNESIUM OXIDE

REACTIONS (5)
  - Dyspnoea [None]
  - Decreased appetite [None]
  - Fatigue [None]
  - Muscular weakness [None]
  - Pain [None]

NARRATIVE: CASE EVENT DATE: 20210923
